FAERS Safety Report 11031372 (Version 1)
Quarter: 2015Q2

REPORT INFORMATION
  Report Type: Spontaneous
  Country: US (occurrence: US)
  Receive Date: 20150415
  Receipt Date: 20150415
  Transmission Date: 20150821
  Serious: No
  Sender: FDA-Public Use
  Company Number: US-PFIZER INC-2015123024

PATIENT
  Age: 44 Year
  Sex: Female

DRUGS (1)
  1. GENOTROPIN MQ [Suspect]
     Active Substance: SOMATROPIN
     Indication: HYPOTHALAMO-PITUITARY DISORDER
     Dosage: 0.6 MG, 1X/DAY
     Route: 058
     Dates: start: 2001

REACTIONS (6)
  - Hot flush [Unknown]
  - Fatigue [Unknown]
  - Insomnia [Unknown]
  - Intentional product misuse [Unknown]
  - Fluid retention [Recovered/Resolved]
  - Peripheral swelling [Recovered/Resolved]

NARRATIVE: CASE EVENT DATE: 2001
